FAERS Safety Report 25265470 (Version 1)
Quarter: 2025Q2

REPORT INFORMATION
  Report Type: Spontaneous
  Country: US (occurrence: US)
  Receive Date: 20250502
  Receipt Date: 20250502
  Transmission Date: 20250717
  Serious: Yes (Hospitalization)
  Sender: PFIZER
  Company Number: US-PFIZER INC-202500091808

PATIENT
  Age: 38 Year
  Sex: Female

DRUGS (2)
  1. CIBINQO [Suspect]
     Active Substance: ABROCITINIB
     Indication: Eczema
     Dosage: 100 MG, DAILY
  2. CIBINQO [Suspect]
     Active Substance: ABROCITINIB
     Dosage: 200 MG, DAILY

REACTIONS (7)
  - Arthralgia [Unknown]
  - White blood cell count increased [Unknown]
  - Condition aggravated [Unknown]
  - Eczema [Unknown]
  - Rash [Not Recovered/Not Resolved]
  - Swelling face [Unknown]
  - Drug effect less than expected [Unknown]
